FAERS Safety Report 4442639-3 (Version None)
Quarter: 2004Q3

REPORT INFORMATION
  Report Type: 
  Country: None (occurrence: None)
  Receive Date: 20040903
  Receipt Date: 20040607
  Transmission Date: 20050211
  Serious: Yes (Other)
  Sender: FDA-Public Use
  Company Number: 2004UW11786

PATIENT
  Age: 63 Year
  Sex: Female
  Weight: 82.1011 kg

DRUGS (8)
  1. CRESTOR [Suspect]
     Indication: DIABETES MELLITUS
     Dosage: 5 MG QD PO
     Route: 048
     Dates: start: 20040201, end: 20040315
  2. CRESTOR [Suspect]
     Indication: DIABETES MELLITUS
     Dosage: 5 MG QD PO
     Route: 048
     Dates: start: 20040316, end: 20040501
  3. CRESTOR [Suspect]
     Indication: DIABETES MELLITUS
     Dosage: 2.5 MG QD PO
     Route: 048
     Dates: start: 20040501, end: 20040501
  4. INSULIN [Concomitant]
  5. ESTRADIOL [Concomitant]
  6. PROZAC [Concomitant]
  7. TRAZODONE [Concomitant]
  8. NEURONTIN [Concomitant]

REACTIONS (4)
  - DYSPHONIA [None]
  - HYPOAESTHESIA [None]
  - PARAESTHESIA [None]
  - SOMNOLENCE [None]
